FAERS Safety Report 15050490 (Version 1)
Quarter: 2018Q2

REPORT INFORMATION
  Report Type: Other
  Country: DK (occurrence: DK)
  Receive Date: 20180622
  Receipt Date: 20180622
  Transmission Date: 20180711
  Serious: Yes (Congenital Anomaly)
  Sender: FDA-Public Use
  Company Number: DK-CELLTRION INC.-2018DK020630

PATIENT

DRUGS (2)
  1. REMSIMA [Suspect]
     Active Substance: INFLIXIMAB
     Dosage: 300 MG, 8 WEEKS
     Route: 064
     Dates: start: 20171215, end: 20171215
  2. REMSIMA [Suspect]
     Active Substance: INFLIXIMAB
     Indication: ANKYLOSING SPONDYLITIS
     Dosage: 300 MG, 8 WEEKS
     Route: 064
     Dates: start: 20170313, end: 20170313

REACTIONS (5)
  - Foetal growth restriction [Recovered/Resolved]
  - Labour induction [Recovered/Resolved]
  - Foetal exposure during pregnancy [Recovered/Resolved]
  - Premature baby [Not Recovered/Not Resolved]
  - Placental insufficiency [Recovered/Resolved]

NARRATIVE: CASE EVENT DATE: 2017
